FAERS Safety Report 24552911 (Version 1)
Quarter: 2024Q4

REPORT INFORMATION
  Report Type: Other
  Country: US (occurrence: CA)
  Receive Date: 20241027
  Receipt Date: 20241027
  Transmission Date: 20250114
  Serious: Yes (Hospitalization, Other)
  Sender: HLS THERAPEUTICS
  Company Number: US-HLS-202401207

PATIENT
  Age: 19 Year
  Sex: Male

DRUGS (4)
  1. CLOZAPINE [Suspect]
     Active Substance: CLOZAPINE
     Indication: Bipolar disorder
     Dosage: 100MG DAILY FOR 8 WEEKS.
     Route: 065
  2. LURASIDONE [Concomitant]
     Active Substance: LURASIDONE
     Route: 065
  3. METHYLPHENIDATE [Concomitant]
     Active Substance: METHYLPHENIDATE
     Indication: Product used for unknown indication
     Route: 065
  4. VALPROATE SODIUM [Concomitant]
     Active Substance: VALPROATE SODIUM
     Indication: Product used for unknown indication
     Route: 065

REACTIONS (7)
  - Drug ineffective [Unknown]
  - Hypoxia [Recovered/Resolved]
  - Lumbosacral plexopathy [Recovering/Resolving]
  - Metabolic acidosis [Recovered/Resolved]
  - Suicide attempt [Unknown]
  - Toxicity to various agents [Unknown]
  - Loss of consciousness [Recovered/Resolved]
